FAERS Safety Report 9494768 (Version 1)
Quarter: 2013Q3

REPORT INFORMATION
  Report Type: Spontaneous
  Country: US (occurrence: US)
  Receive Date: 20130903
  Receipt Date: 20130903
  Transmission Date: 20140515
  Serious: No
  Sender: FDA-Public Use
  Company Number: US-PFIZER INC-2013251848

PATIENT
  Age: 25 Year
  Sex: Female

DRUGS (1)
  1. XALKORI [Suspect]
     Indication: LUNG NEOPLASM MALIGNANT
     Dosage: 250 MG (1 CAPSULE), 2X/DAY
     Dates: start: 20130729

REACTIONS (4)
  - Cough [Unknown]
  - Increased upper airway secretion [Unknown]
  - Flatulence [Unknown]
  - Photopsia [Unknown]
